FAERS Safety Report 9170833 (Version 1)
Quarter: 2013Q1

REPORT INFORMATION
  Report Type: Spontaneous
  Country: GB (occurrence: None)
  Receive Date: 20130312
  Receipt Date: 20130312
  Transmission Date: 20140127
  Serious: Yes (Other)
  Sender: FDA-Public Use
  Company Number: FK201300721

PATIENT
  Age: 23 Year
  Sex: Male

DRUGS (7)
  1. VALPROATE [Suspect]
     Indication: SCHIZOAFFECTIVE DISORDER
  2. QUETIAPINE (QUETIAPINE) (QUETIAPINE) [Suspect]
     Indication: SCHIZOAFFECTIVE DISORDER
  3. ZUCLOPHENTHIXOL [Concomitant]
  4. AMISULPRIDE (AMISULPRIDE) [Concomitant]
  5. OLANZAPINE (OLANZAPINE) [Concomitant]
  6. LITHIUM [Concomitant]
  7. ARIPRAZOLE [Concomitant]

REACTIONS (9)
  - Agranulocytosis [None]
  - Extrapyramidal disorder [None]
  - Tachycardia [None]
  - Oropharyngeal pain [None]
  - Periorbital cellulitis [None]
  - No therapeutic response [None]
  - Schizoaffective disorder [None]
  - Disease recurrence [None]
  - Refusal of treatment by patient [None]
